FAERS Safety Report 8140316-9 (Version None)
Quarter: 2012Q1

REPORT INFORMATION
  Report Type: 
  Country: None (occurrence: None)
  Receive Date: 20120216
  Receipt Date: 20120207
  Transmission Date: 20120608
  Serious: No
  Sender: FDA-Public Use
  Company Number: US-PFIZER INC-2012034555

PATIENT
  Sex: Female
  Weight: 61.2 kg

DRUGS (2)
  1. LO/OVRAL-28 [Suspect]
     Indication: CONTRACEPTION
     Dosage: (28 TABLETS) ONE TABLET DAILY
     Dates: start: 20111201
  2. LO/OVRAL-28 [Suspect]
     Indication: HORMONE THERAPY

REACTIONS (2)
  - WEIGHT INCREASED [None]
  - ACNE [None]
